FAERS Safety Report 24816347 (Version 6)
Quarter: 2025Q1

REPORT INFORMATION
  Report Type: Report from Study
  Country: KR (occurrence: KR)
  Receive Date: 20250107
  Receipt Date: 20250325
  Transmission Date: 20250408
  Serious: Yes (Life-Threatening, Hospitalization, Other)
  Sender: JAZZ
  Company Number: KR-BR-2024-0328

PATIENT
  Age: 62 Year
  Sex: Male
  Weight: 46.4 kg

DRUGS (9)
  1. LURBINECTEDIN [Suspect]
     Active Substance: LURBINECTEDIN
     Indication: Small cell lung cancer
     Dosage: 2.6 MILLIGRAM/SQ. METER, Q3W
     Route: 042
     Dates: start: 20241105, end: 20241126
  2. ENCOVER [Concomitant]
     Indication: Nutritional supplementation
     Route: 048
     Dates: start: 20241104, end: 20241207
  3. TEGOPRAZAN [Concomitant]
     Active Substance: TEGOPRAZAN
     Indication: Prophylaxis
     Dosage: 50 MILLIGRAM, QD
     Route: 048
     Dates: start: 20241104, end: 20241207
  4. MACPERAN [METOCLOPRAMIDE] [Concomitant]
     Indication: Small cell lung cancer
     Dosage: 10 MILLIGRAM, Q8H
     Route: 048
     Dates: start: 20241104, end: 20241201
  5. ALOXI [Concomitant]
     Active Substance: PALONOSETRON HYDROCHLORIDE
     Indication: Premedication
     Dosage: 0.25 MILLIGRAM, QD
     Route: 042
     Dates: start: 20241105, end: 20241105
  6. ALOXI [Concomitant]
     Active Substance: PALONOSETRON HYDROCHLORIDE
     Dosage: 0.25 MILLIGRAM, QD
     Route: 042
     Dates: start: 20241126, end: 20241126
  7. MEGACE F [Concomitant]
     Indication: Nutritional supplementation
     Dosage: 5 MILLILITER, QD
     Route: 048
     Dates: start: 20241126, end: 20241203
  8. NALOXONE HYDROCHLORIDE\OXYCODONE HYDROCHLORIDE [Concomitant]
     Active Substance: NALOXONE HYDROCHLORIDE\OXYCODONE HYDROCHLORIDE
     Indication: Small cell lung cancer
     Route: 048
     Dates: start: 20241126, end: 20241207
  9. URSODIOL [Concomitant]
     Active Substance: URSODIOL
     Indication: Aspartate aminotransferase increased
     Dosage: 1 DOSAGE FORM, Q8H
     Route: 048
     Dates: start: 20241126, end: 20241207

REACTIONS (1)
  - Pneumonia klebsiella [Not Recovered/Not Resolved]

NARRATIVE: CASE EVENT DATE: 20241208
